FAERS Safety Report 8876262 (Version 2)
Quarter: 2013Q3

REPORT INFORMATION
  Report Type: Spontaneous
  Country: US (occurrence: US)
  Receive Date: 20121023
  Receipt Date: 20130905
  Transmission Date: 20140515
  Serious: Yes (Disabling, Other)
  Sender: FDA-Public Use
  Company Number: US-009507513-1210USA006941

PATIENT
  Sex: Female

DRUGS (4)
  1. FOSAMAX [Suspect]
     Indication: OSTEOPOROSIS
     Dosage: 10 MG, DAILY
     Route: 048
     Dates: start: 19991227, end: 20100410
  2. FOSAMAX [Suspect]
     Dosage: 70 MG, WEEKLY
     Route: 048
     Dates: end: 20100410
  3. ALENDRONATE SODIUM [Suspect]
     Indication: OSTEOPOROSIS
     Dosage: 10 MG, DAILY
     Dates: start: 19991227, end: 20100410
  4. ALENDRONATE SODIUM [Suspect]
     Dosage: 70 MG, WEEKLY
     Dates: end: 20100410

REACTIONS (7)
  - Femur fracture [Not Recovered/Not Resolved]
  - Intramedullary rod insertion [Unknown]
  - Osteoporosis [Unknown]
  - Multiple fractures [Unknown]
  - Femur fracture [Unknown]
  - Low turnover osteopathy [Unknown]
  - Thrombosis [Unknown]
